FAERS Safety Report 10416479 (Version 1)
Quarter: 2014Q3

REPORT INFORMATION
  Report Type: Spontaneous
  Country: US (occurrence: None)
  Receive Date: 20140827
  Receipt Date: 20140827
  Transmission Date: 20150326
  Serious: Yes (Hospitalization)
  Sender: FDA-Public Use
  Company Number: None

PATIENT
  Age: 49 Year
  Sex: Female
  Weight: 63.5 kg

DRUGS (1)
  1. ZYRTEC [Suspect]
     Active Substance: CETIRIZINE HYDROCHLORIDE
     Indication: MULTIPLE ALLERGIES
     Dosage: 1 PILL, TAKEN BY MOUTH?
     Route: 048
     Dates: start: 20140613, end: 20140613

REACTIONS (7)
  - Vision blurred [None]
  - Product quality issue [None]
  - Dizziness [None]
  - Product dosage form issue [None]
  - Agitation [None]
  - Dry mouth [None]
  - Anticholinergic syndrome [None]

NARRATIVE: CASE EVENT DATE: 20140613
